FAERS Safety Report 7401234-4 (Version None)
Quarter: 2011Q2

REPORT INFORMATION
  Report Type: 
  Country: None (occurrence: None)
  Receive Date: 20110407
  Receipt Date: 20110331
  Transmission Date: 20111010
  Serious: Yes (Hospitalization)
  Sender: FDA-Public Use
  Company Number: US-US-EMD SERONO, INC.-7051344

PATIENT
  Sex: Female
  Weight: 36 kg

DRUGS (3)
  1. IMITREX [Concomitant]
  2. REBIF [Suspect]
     Route: 058
     Dates: start: 20110301
  3. REBIF [Suspect]
     Indication: MULTIPLE SCLEROSIS
     Route: 058
     Dates: start: 20090122, end: 20101016

REACTIONS (3)
  - DIARRHOEA [None]
  - CONTUSION [None]
  - UPPER LIMB FRACTURE [None]
